FAERS Safety Report 24359516 (Version 1)
Quarter: 2024Q3

REPORT INFORMATION
  Report Type: Spontaneous
  Country: US (occurrence: US)
  Receive Date: 20240924
  Receipt Date: 20240924
  Transmission Date: 20241017
  Serious: No
  Sender: SANOFI AVENTIS
  Company Number: US-SA-2024SA269947

PATIENT
  Age: 62 Year
  Sex: Female

DRUGS (1)
  1. DUPIXENT [Suspect]
     Active Substance: DUPILUMAB
     Indication: Asthma
     Dosage: 300 MG, QOW
     Route: 058

REACTIONS (11)
  - Swelling face [Unknown]
  - Chest discomfort [Unknown]
  - Injection site scar [Unknown]
  - Injection site discolouration [Unknown]
  - Ocular hyperaemia [Unknown]
  - Eye swelling [Unknown]
  - Vision blurred [Unknown]
  - Eye pruritus [Unknown]
  - Injection site swelling [Unknown]
  - Injection site erythema [Unknown]
  - Injection site pruritus [Unknown]
